FAERS Safety Report 22539226 (Version 1)
Quarter: 2023Q2

REPORT INFORMATION
  Report Type: Spontaneous
  Country: US (occurrence: US)
  Receive Date: 20230609
  Receipt Date: 20230609
  Transmission Date: 20230721
  Serious: Yes (Death, Hospitalization, Other)
  Sender: FDA-Public Use
  Company Number: US-BoehringerIngelheim-2023-BI-242925

PATIENT
  Age: 69 Year
  Sex: Male

DRUGS (2)
  1. JARDIANCE [Suspect]
     Active Substance: EMPAGLIFLOZIN
     Indication: Product used for unknown indication
     Dates: end: 202305
  2. DEVICE\INSULIN NOS [Concomitant]
     Active Substance: DEVICE\INSULIN NOS
     Indication: Type 2 diabetes mellitus

REACTIONS (2)
  - Death [Fatal]
  - Diabetic ketoacidosis [Unknown]

NARRATIVE: CASE EVENT DATE: 20230501
